FAERS Safety Report 10373660 (Version 1)
Quarter: 2014Q1

REPORT INFORMATION
  Report Type: Spontaneous
  Country: US (occurrence: None)
  Receive Date: 20140306
  Receipt Date: 20140306
  Transmission Date: 20141002
  Serious: Yes (Life-Threatening, Other)
  Sender: FDA-Public Use
  Company Number: 163-21880-13051333

PATIENT
  Age: 70 Year
  Sex: Male

DRUGS (9)
  1. REVLIMID (LENALIDOMIDE) (10 MILLIGRAM, CAPSULES) [Suspect]
     Indication: PLASMA CELL MYELOMA
     Route: 048
     Dates: start: 20110714
  2. B COMPLEX (BECOSYM FORTE) (TABLETS) [Concomitant]
  3. CLONAZEPAM (TABLETS) [Concomitant]
  4. ESTER-C (CALCIUM ASCORBATE) (TABLETS) [Concomitant]
  5. MULTIPLE VITAMINS (TABLETS) [Concomitant]
  6. OMEPRAZOLE (TABLETS) [Concomitant]
  7. VITAMIN B-12 (CYANCOBALAMIN) [Concomitant]
  8. VITAMIN D3 (COLECALCIFEROL) [Concomitant]
  9. EFFEXOR XR (VENLAFAXINE HYDROCHLORIDE) (75 MILLIGRAM, CAPSULE) (VENLAFAXINE HYDROCHLORIDE) [Concomitant]

REACTIONS (1)
  - Thrombosis [None]
